FAERS Safety Report 10530337 (Version 1)
Quarter: 2014Q4

REPORT INFORMATION
  Report Type: Spontaneous
  Country: FR (occurrence: None)
  Receive Date: 20141017
  Receipt Date: 20141017
  Transmission Date: 20150528
  Serious: Yes (Life-Threatening)
  Sender: FDA-Public Use
  Company Number: 2014-003030

PATIENT
  Age: 68 Year
  Sex: Female

DRUGS (3)
  1. ACTONEL [Suspect]
     Active Substance: RISEDRONATE SODIUM
     Indication: OSTEOPOROSIS
     Route: 048
  2. REMICADE [Suspect]
     Active Substance: INFLIXIMAB
     Indication: RHEUMATOID ARTHRITIS
     Route: 042
     Dates: end: 201408
  3. REMICADE [Suspect]
     Active Substance: INFLIXIMAB
     Indication: OSTEOPOROSIS
     Route: 042
     Dates: end: 201408

REACTIONS (2)
  - Squamous cell carcinoma of lung [None]
  - Pulmonary mass [None]

NARRATIVE: CASE EVENT DATE: 201409
